FAERS Safety Report 10090448 (Version 2)
Quarter: 2014Q2

REPORT INFORMATION
  Report Type: Spontaneous
  Country: US (occurrence: US)
  Receive Date: 20140421
  Receipt Date: 20140429
  Transmission Date: 20141212
  Serious: Yes (Hospitalization)
  Sender: FDA-Public Use
  Company Number: US-JNJFOC-20140414108

PATIENT
  Age: 83 Year
  Sex: Male
  Weight: 80.3 kg

DRUGS (7)
  1. IMBRUVICA [Suspect]
     Indication: CHRONIC LYMPHOCYTIC LEUKAEMIA
     Route: 048
     Dates: start: 201404
  2. IMBRUVICA [Suspect]
     Indication: CHRONIC LYMPHOCYTIC LEUKAEMIA
     Route: 048
     Dates: start: 201312, end: 201403
  3. IRON [Concomitant]
     Indication: SUPPLEMENTATION THERAPY
  4. NORVASC [Concomitant]
  5. PROCRIT                            /00909301/ [Concomitant]
  6. ISOSORBIDE [Concomitant]
  7. CARDIZEM                           /00489701/ [Concomitant]

REACTIONS (2)
  - Malignant pleural effusion [Recovered/Resolved]
  - Platelet count decreased [Unknown]
